FAERS Safety Report 9931228 (Version 2)
Quarter: 2014Q1

REPORT INFORMATION
  Report Type: Spontaneous
  Country: US (occurrence: US)
  Receive Date: 20140228
  Receipt Date: 20140312
  Transmission Date: 20141002
  Serious: Yes (Other)
  Sender: FDA-Public Use
  Company Number: US-ROCHE-1356084

PATIENT
  Age: 61 Year
  Sex: Female
  Weight: 72.64 kg

DRUGS (9)
  1. XOLAIR [Suspect]
     Indication: ASTHMA
     Route: 058
  2. MOTRIN [Concomitant]
     Indication: PROCEDURAL PAIN
  3. ADVAIR [Concomitant]
  4. PRILOSEC [Concomitant]
  5. XYZAL [Concomitant]
  6. VITAMIN D3 [Concomitant]
  7. BENTYL [Concomitant]
  8. DUONEB [Concomitant]
  9. PROAIR (UNITED STATES) [Concomitant]

REACTIONS (2)
  - Bone fragmentation [Unknown]
  - Limb injury [Unknown]
